FAERS Safety Report 6571561-1 (Version None)
Quarter: 2010Q1

REPORT INFORMATION
  Report Type: 
  Country: None (occurrence: None)
  Receive Date: 20100205
  Receipt Date: 20100126
  Transmission Date: 20100710
  Serious: Yes (Other)
  Sender: FDA-Public Use
  Company Number: US-JNJFOC-20100109969

PATIENT
  Age: 56 Year
  Sex: Female
  Weight: 54.89 kg

DRUGS (13)
  1. MOTRIN IB [Suspect]
     Route: 048
  2. MOTRIN IB [Suspect]
     Indication: PAIN
     Dosage: 4 TO 8 PILLS
     Route: 048
  3. ARIMIDEX [Interacting]
     Indication: NEOPLASM PROPHYLAXIS
  4. LEVOTHYROXINE SODIUM [Concomitant]
     Indication: THYROID DISORDER
  5. LAMICTAL [Concomitant]
     Indication: BIPOLAR DISORDER
  6. LAMICTAL [Concomitant]
  7. ADDERALL 30 [Concomitant]
     Indication: MANIA
     Dosage: 15 TO 30 MG DOSE VARIES
  8. PROPRANOLOL [Concomitant]
     Indication: MANIA
     Dosage: 30 TO 120 MG DOSE VARIES
  9. PROPRANOLOL [Concomitant]
     Indication: TREMOR
     Dosage: 30 TO 120 MG DOSE VARIES
  10. ALPRAZOLAM [Concomitant]
     Indication: MANIA
     Dosage: 4 TO 6 MG DOSE VARIES, USED ^YEARS AGO^
  11. ALPRAZOLAM [Concomitant]
     Indication: ANXIETY
     Dosage: 4 TO 6 MG DOSE VARIES, USED ^YEARS AGO^
  12. SENOKOT [Concomitant]
     Indication: CONSTIPATION
  13. CALCIUM WITH VITAMIN D [Concomitant]
     Indication: BONE DENSITY DECREASED

REACTIONS (7)
  - ADVERSE EVENT [None]
  - BONE DENSITY DECREASED [None]
  - DRUG INTERACTION [None]
  - MANIA [None]
  - NEOPLASM MALIGNANT [None]
  - PRODUCT QUALITY ISSUE [None]
  - TREMOR [None]
